FAERS Safety Report 9072438 (Version 2)
Quarter: 2013Q1

REPORT INFORMATION
  Report Type: Spontaneous
  Country: BR (occurrence: BR)
  Receive Date: 20130207
  Receipt Date: 20130315
  Transmission Date: 20140127
  Serious: Yes (Death, Hospitalization, Other)
  Sender: FDA-Public Use
  Company Number: BR-PFIZER INC-2013048530

PATIENT
  Age: 67 Year
  Sex: Male
  Weight: 69 kg

DRUGS (2)
  1. SUTENT [Suspect]
     Indication: RENAL CELL CARCINOMA
     Dosage: 50 MG (ONE TABLET), CYCLIC 4X2
     Route: 048
     Dates: start: 20130121
  2. MORPHINE [Concomitant]

REACTIONS (2)
  - Death [Fatal]
  - Pneumonia [Unknown]
